FAERS Safety Report 20482077 (Version 1)
Quarter: 2022Q1

REPORT INFORMATION
  Report Type: Spontaneous
  Country: GB (occurrence: GB)
  Receive Date: 20220216
  Receipt Date: 20220216
  Transmission Date: 20220423
  Serious: Yes (Other)
  Sender: FDA-Public Use
  Company Number: GB-SEATTLE GENETICS-2022SGN01024

PATIENT
  Sex: Female

DRUGS (1)
  1. TUKYSA [Suspect]
     Active Substance: TUCATINIB
     Indication: Product used for unknown indication
     Dosage: UNK
     Route: 065

REACTIONS (7)
  - Pulmonary embolism [Unknown]
  - Gastrointestinal motility disorder [Unknown]
  - Increased appetite [Unknown]
  - Decreased activity [Unknown]
  - Dyspnoea [Unknown]
  - Dry skin [Unknown]
  - Pain [Unknown]
